FAERS Safety Report 18676767 (Version 2)
Quarter: 2021Q1

REPORT INFORMATION
  Report Type: Spontaneous
  Country: CN (occurrence: CN)
  Receive Date: 20201229
  Receipt Date: 20210106
  Transmission Date: 20210419
  Serious: Yes (Hospitalization, Other)
  Sender: FDA-Public Use
  Company Number: CN-PFIZER INC-2020511127

PATIENT
  Age: 45 Year
  Sex: Male
  Weight: 76 kg

DRUGS (2)
  1. LINEZOLID. [Suspect]
     Active Substance: LINEZOLID
     Indication: PNEUMONIA
     Dosage: 0.6 G, ONCE A DAY
     Route: 048
     Dates: start: 20201208, end: 20201209
  2. GLUCOSE/LINEZOLID [Suspect]
     Active Substance: LINEZOLID
     Indication: PNEUMONIA
     Dosage: 0.600 G, ONCE A DAY
     Route: 041
     Dates: start: 20201208, end: 20201209

REACTIONS (6)
  - Gastric haemorrhage [Unknown]
  - Haematemesis [Recovering/Resolving]
  - Occult blood positive [Not Recovered/Not Resolved]
  - Haemoglobin decreased [Unknown]
  - Off label use [Unknown]
  - Platelet count decreased [Not Recovered/Not Resolved]

NARRATIVE: CASE EVENT DATE: 20201208
